FAERS Safety Report 8973306 (Version 1)
Quarter: 2012Q4

REPORT INFORMATION
  Report Type: 
  Country: US (occurrence: US)
  Receive Date: 20121218
  Receipt Date: 20121218
  Transmission Date: 20130627
  Serious: No
  Sender: FDA-Public Use
  Company Number: US-BRISTOL-MYERS SQUIBB COMPANY-16440653

PATIENT
  Age: 54 Year
  Sex: Female
  Weight: 54 kg

DRUGS (5)
  1. ABILIFY [Suspect]
     Indication: BIPOLAR DISORDER
  2. ABILIFY [Suspect]
     Indication: DEPRESSION
  3. LITHIUM [Concomitant]
  4. VALIUM [Concomitant]
     Indication: ANXIETY
  5. VALIUM [Concomitant]
     Indication: PALPITATIONS

REACTIONS (1)
  - Headache [Not Recovered/Not Resolved]
